FAERS Safety Report 4967319-7 (Version None)
Quarter: 2006Q2

REPORT INFORMATION
  Report Type: 
  Country: None (occurrence: None)
  Receive Date: 20060404
  Receipt Date: 20060322
  Transmission Date: 20061013
  Serious: Yes (Other)
  Sender: FDA-Public Use
  Company Number: 8013100

PATIENT
  Age: 52 Year
  Sex: Female
  Weight: 86 kg

DRUGS (7)
  1. KEPPRA [Suspect]
     Indication: CONVULSION
     Dosage: 250 MG 2/D PO
     Route: 048
     Dates: start: 20051020, end: 20051026
  2. KEPPRA [Suspect]
     Indication: CONVULSION
     Dosage: 500 MG 2/D PO
     Route: 048
     Dates: start: 20051027, end: 20051102
  3. KEPPRA [Suspect]
     Indication: CONVULSION
     Dosage: 500 MG 2/D PO
     Route: 048
     Dates: start: 20051109
  4. SINEQUAN [Concomitant]
  5. LITHIUM [Concomitant]
  6. STELAZINE [Concomitant]
  7. SYMMETREL [Concomitant]

REACTIONS (9)
  - AGITATION [None]
  - BALANCE DISORDER [None]
  - BIPOLAR DISORDER [None]
  - CONDITION AGGRAVATED [None]
  - DEPRESSION [None]
  - DIFFICULTY IN WALKING [None]
  - PORPHYRIA ACUTE [None]
  - SELF-INJURIOUS IDEATION [None]
  - SUICIDAL IDEATION [None]
